FAERS Safety Report 18852612 (Version 2)
Quarter: 2021Q1

REPORT INFORMATION
  Report Type: Report from Study
  Country: UA (occurrence: UA)
  Receive Date: 20210205
  Receipt Date: 20210210
  Transmission Date: 20210420
  Serious: Yes (Hospitalization)
  Sender: FDA-Public Use
  Company Number: UA-CELGENEUS-GBR-20201104535

PATIENT
  Age: 28 Year
  Sex: Female

DRUGS (8)
  1. OZANIMOD. [Suspect]
     Active Substance: OZANIMOD
     Dosage: 4 CAPSULE
     Route: 048
     Dates: start: 20161125, end: 20161127
  2. OZANIMOD. [Suspect]
     Active Substance: OZANIMOD
     Dosage: 1 CAPSULE
     Route: 048
     Dates: start: 20161202, end: 20180714
  3. OZANIMOD. [Suspect]
     Active Substance: OZANIMOD
     Dosage: 1 CAPSULE
     Route: 048
     Dates: start: 20161121, end: 20161124
  4. OZANIMOD. [Suspect]
     Active Substance: OZANIMOD
     Dosage: 1 CAPSULE
     Route: 048
     Dates: start: 20190417, end: 20201114
  5. OZANIMOD. [Suspect]
     Active Substance: OZANIMOD
     Dosage: 1 CAPSULE
     Route: 048
     Dates: start: 20161128, end: 20161130
  6. OZANIMOD. [Suspect]
     Active Substance: OZANIMOD
     Dosage: 1 CAPSULE
     Route: 048
     Dates: start: 20180802, end: 20190415
  7. OZANIMOD. [Suspect]
     Active Substance: OZANIMOD
     Indication: RELAPSING MULTIPLE SCLEROSIS
     Dosage: 1 CAPSULE
     Route: 048
     Dates: start: 20161121, end: 20201114
  8. OZANIMOD. [Suspect]
     Active Substance: OZANIMOD
     Dosage: 1 CAPSULE
     Route: 048
     Dates: start: 20180716, end: 20180731

REACTIONS (1)
  - Epilepsy [Recovered/Resolved]

NARRATIVE: CASE EVENT DATE: 20201114
